FAERS Safety Report 16543429 (Version 2)
Quarter: 2024Q2

REPORT INFORMATION
  Report Type: Report from Study
  Country: ES (occurrence: ES)
  Receive Date: 20190709
  Receipt Date: 20240405
  Transmission Date: 20240716
  Serious: Yes (Hospitalization, Other)
  Sender: FDA-Public Use
  Company Number: ES-EMA-DD-20190627-BHARDWAJ_R-183216

PATIENT
  Age: 59 Year
  Sex: Female
  Weight: 82 kg

DRUGS (8)
  1. EVEROLIMUS [Suspect]
     Active Substance: EVEROLIMUS
     Indication: Immunosuppression
     Dosage: UNK
     Route: 065
  2. OMEPRAZOLE [Concomitant]
     Active Substance: OMEPRAZOLE
     Indication: Prophylaxis
     Dosage: DOSAGE TEXT: 20 MG, UNK
     Route: 065
     Dates: start: 20170516
  3. LORAZEPAM [Concomitant]
     Active Substance: LORAZEPAM
     Indication: Anxiolytic therapy
     Dosage: DOSAGE TEXT: 1 MG, UNK
     Route: 065
     Dates: start: 20170602
  4. MYCOPHENOLATE MOFETIL [Suspect]
     Active Substance: MYCOPHENOLATE MOFETIL
     Indication: Immunosuppression
     Dosage: UNK
     Route: 065
     Dates: start: 2017, end: 20170626
  5. ENVARSUS XR [Suspect]
     Active Substance: TACROLIMUS
     Indication: Anxiolytic therapy
     Dosage: DOSAGE TEXT: 1 MG, UNK
     Route: 065
     Dates: start: 20170602
  6. ENVARSUS XR [Suspect]
     Active Substance: TACROLIMUS
     Indication: Anxiolytic therapy
     Dosage: DOSAGE TEXT: 8 MG, QD
     Route: 048
     Dates: start: 20170522
  7. INSULIN NOS [Concomitant]
     Active Substance: INSULIN NOS
     Indication: Hypoglycaemia
     Dosage: DOSAGE TEXT: UNK
     Route: 065
     Dates: start: 20170516
  8. SULFAMETHOXAZOLE\TRIMETHOPRIM [Concomitant]
     Active Substance: SULFAMETHOXAZOLE\TRIMETHOPRIM
     Indication: Prophylaxis
     Dosage: DOSAGE TEXT: UNK
     Route: 065
     Dates: start: 20170518

REACTIONS (7)
  - Ascites [Unknown]
  - Cholestasis [Recovered/Resolved]
  - Transplant rejection [Recovered/Resolved]
  - Cell death [Recovered/Resolved]
  - Liver function test abnormal [Recovered/Resolved]
  - Hyperglycaemia [Recovered/Resolved]
  - Diabetes mellitus [Recovered/Resolved]

NARRATIVE: CASE EVENT DATE: 20170522
